FAERS Safety Report 7225875-2 (Version None)
Quarter: 2011Q1

REPORT INFORMATION
  Report Type: 
  Country: None (occurrence: None)
  Receive Date: 20110113
  Receipt Date: 20101227
  Transmission Date: 20110831
  Serious: No
  Sender: FDA-Public Use
  Company Number: US-B.I. PHARMACEUTICALS,INC./RIDGEFIELD-2011-BP-00198BP

PATIENT
  Sex: Female

DRUGS (3)
  1. LOVASTATIN [Concomitant]
     Indication: HYPERTENSION
  2. DIGOXIN [Concomitant]
     Indication: ATRIAL FIBRILLATION
  3. PRADAXA [Suspect]
     Indication: ATRIAL FIBRILLATION
     Dosage: 300 MG
     Route: 048
     Dates: start: 20101218

REACTIONS (4)
  - THROAT IRRITATION [None]
  - DYSPEPSIA [None]
  - OESOPHAGEAL PAIN [None]
  - CARDIAC FLUTTER [None]
